FAERS Safety Report 20009902 (Version 1)
Quarter: 2021Q4

REPORT INFORMATION
  Report Type: Spontaneous
  Country: NL (occurrence: NL)
  Receive Date: 20211028
  Receipt Date: 20211028
  Transmission Date: 20220304
  Serious: Yes (Other)
  Sender: FDA-Public Use
  Company Number: None

PATIENT
  Age: 60 Year
  Sex: Female
  Weight: 80 kg

DRUGS (1)
  1. CLINDAMYCIN HYDROCHLORIDE [Suspect]
     Active Substance: CLINDAMYCIN HYDROCHLORIDE
     Indication: Osteitis
     Dosage: 600 MG, 3X/DAY (8 HOURLY)
     Dates: start: 20210324, end: 20210326

REACTIONS (10)
  - Hypertension [Recovered/Resolved]
  - Abdominal pain upper [Recovered/Resolved]
  - Oropharyngeal spasm [Recovered/Resolved]
  - Pharyngeal swelling [Recovered/Resolved]
  - Dizziness [Recovered/Resolved]
  - Vomiting [Recovered/Resolved]
  - Oesophageal discomfort [Recovered/Resolved]
  - Abdominal distension [Recovered/Resolved]
  - Prescription drug used without a prescription [Unknown]
  - Off label use [Unknown]

NARRATIVE: CASE EVENT DATE: 20210324
